FAERS Safety Report 10252544 (Version 2)
Quarter: 2014Q3

REPORT INFORMATION
  Report Type: Spontaneous
  Country: US (occurrence: None)
  Receive Date: 20140619
  Receipt Date: 20140708
  Transmission Date: 20150326
  Serious: Yes (Hospitalization)
  Sender: FDA-Public Use
  Company Number: US-000993

PATIENT
  Age: 47 Year
  Sex: Female

DRUGS (16)
  1. MAGNESIUM SULFATE [Concomitant]
     Active Substance: MAGNESIUM SULFATE
  2. SOLUTIONS FOR PARENTERAL NUTRITION [Concomitant]
     Active Substance: AMINO ACIDS\DEXTROSE\ELECTROLYTES NOS
  3. XANAX [Concomitant]
     Active Substance: ALPRAZOLAM
  4. HYDROCODONE [Concomitant]
     Active Substance: HYDROCODONE
  5. NYSTATIN. [Concomitant]
     Active Substance: NYSTATIN
  6. AMBIEN [Concomitant]
     Active Substance: ZOLPIDEM TARTRATE
  7. ALPRAZOLAM. [Concomitant]
     Active Substance: ALPRAZOLAM
  8. GATTEX [Suspect]
     Active Substance: TEDUGLUTIDE\WATER
     Indication: SHORT-BOWEL SYNDROME
     Dosage: QD, STREN/VOLUM: 0.39 ML/FREQU: DAILY SUBCUTANEOUS), (0.39 ML QD, STREN/VOLUM; 0.39/FREQ: DAILY SUBCUTANEOUS)
     Route: 058
     Dates: start: 20140402, end: 20140521
  9. LACTATED RINGERS AND DEXTROSE [Suspect]
     Active Substance: CALCIUM CHLORIDE\DEXTROSE MONOHYDRATE\POTASSIUM CHLORIDE\SODIUM CHLORIDE\SODIUM LACTATE
     Indication: DEHYDRATION
     Dosage: STREN/VOLUME: 3 LITERS/FREQU: 7 DAYS WEEK OVER 12 HOURS), (2000 ML QD, STREN/VOLUM: 2800 ML/FREQ: 7 DAYS WEEK OVER 12 HOURS)
  10. CALCIUM GLUCONATE. [Concomitant]
     Active Substance: CALCIUM GLUCONATE
  11. POTASSIUM [Concomitant]
     Active Substance: POTASSIUM
  12. LACTATED RINGERS AND DEXTROSE [Suspect]
     Active Substance: CALCIUM CHLORIDE\DEXTROSE MONOHYDRATE\POTASSIUM CHLORIDE\SODIUM CHLORIDE\SODIUM LACTATE
     Indication: ELECTROLYTE SUBSTITUTION THERAPY
     Dosage: STREN/VOLUME: 3 LITERS/FREQU: 7 DAYS WEEK OVER 12 HOURS), (2000 ML QD, STREN/VOLUM: 2800 ML/FREQ: 7 DAYS WEEK OVER 12 HOURS)
  13. WARFARIN [Concomitant]
     Active Substance: WARFARIN
  14. CLARITHROMYCIN. [Concomitant]
     Active Substance: CLARITHROMYCIN
  15. AFRIN /00070001/ [Concomitant]
  16. PROMETHAZINE [Concomitant]
     Active Substance: PROMETHAZINE\PROMETHAZINE HYDROCHLORIDE

REACTIONS (8)
  - Muscle spasms [None]
  - Device related infection [None]
  - Post procedural haemorrhage [None]
  - Fluid retention [None]
  - Haemorrhage [None]
  - Hot flush [None]
  - Thrombosis in device [None]
  - Drug dose omission [None]

NARRATIVE: CASE EVENT DATE: 201404
